FAERS Safety Report 8270592-3 (Version None)
Quarter: 2012Q2

REPORT INFORMATION
  Report Type: 
  Country: None (occurrence: None)
  Receive Date: 20120406
  Receipt Date: 20120322
  Transmission Date: 20120825
  Serious: Yes (Hospitalization)
  Sender: FDA-Public Use
  Company Number: B0790621A

PATIENT
  Sex: Male
  Weight: 58.9676 kg

DRUGS (3)
  1. SPIRONOLACTONE [Concomitant]
  2. DIGOXIN [Suspect]
     Indication: CARDIAC FAILURE CONGESTIVE
     Dosage: 25 MG/PER DAY/ORAL
     Route: 048
     Dates: start: 20110811
  3. BLINDED TRIAL MEDICATION (FORMULATION UNKNOWN) (BLINDED TRIAL MEDICATI [Suspect]
     Indication: CARDIAC FAILURE
     Dosage: ORAL
     Route: 048
     Dates: start: 20100106

REACTIONS (8)
  - ASTHENIA [None]
  - DYSPNOEA [None]
  - TOXICITY TO VARIOUS AGENTS [None]
  - FATIGUE [None]
  - CARDIAC FAILURE ACUTE [None]
  - HYPOTENSION [None]
  - CARDIAC FAILURE CONGESTIVE [None]
  - FLUID OVERLOAD [None]
